FAERS Safety Report 16408868 (Version 1)
Quarter: 2019Q2

REPORT INFORMATION
  Report Type: Spontaneous
  Country: CN (occurrence: CN)
  Receive Date: 20190610
  Receipt Date: 20190610
  Transmission Date: 20190711
  Serious: Yes (Hospitalization, Other)
  Sender: FDA-Public Use
  Company Number: CN-SA-2019SA155868

PATIENT
  Age: 34 Year
  Sex: Male

DRUGS (8)
  1. PYRAZINAMIDE. [Suspect]
     Active Substance: PYRAZINAMIDE
     Indication: PULMONARY TUBERCULOSIS
     Dosage: 8 DF, QD
     Dates: start: 20190302, end: 20190320
  2. ISONIAZID. [Suspect]
     Active Substance: ISONIAZID
     Dosage: 2 DF, QD
     Route: 048
     Dates: start: 20190321, end: 20190515
  3. LEVOFLOXACIN. [Suspect]
     Active Substance: LEVOFLOXACIN
     Indication: PULMONARY TUBERCULOSIS
     Dosage: 0.5 G, QD
     Route: 048
     Dates: start: 20190321, end: 20190515
  4. RIFAMPICIN [Suspect]
     Active Substance: RIFAMPIN
     Dosage: 2 DF, QD
     Route: 048
     Dates: start: 20190321, end: 20190515
  5. ETHAMBUTOL [Suspect]
     Active Substance: ETHAMBUTOL HYDROCHLORIDE
     Indication: PULMONARY TUBERCULOSIS
     Dosage: 8 DF, QD
     Route: 048
     Dates: start: 20190302, end: 20190320
  6. ISONIAZID. [Suspect]
     Active Substance: ISONIAZID
     Indication: PULMONARY TUBERCULOSIS
     Dosage: 8 DF, QD
     Route: 048
     Dates: start: 20190302, end: 20190320
  7. RIFAMPICIN [Suspect]
     Active Substance: RIFAMPIN
     Indication: PULMONARY TUBERCULOSIS
     Dosage: 8 DF, QD
     Route: 048
     Dates: start: 20190302, end: 20190320
  8. ETHAMBUTOL [Suspect]
     Active Substance: ETHAMBUTOL HYDROCHLORIDE
     Dosage: 3 DF, QD
     Route: 048
     Dates: start: 20190321, end: 20190515

REACTIONS (2)
  - Hepatic function abnormal [Unknown]
  - Poor quality sleep [Unknown]

NARRATIVE: CASE EVENT DATE: 20190515
